FAERS Safety Report 4989136-4 (Version None)
Quarter: 2006Q2

REPORT INFORMATION
  Report Type: 
  Country: None (occurrence: None)
  Receive Date: 20060425
  Receipt Date: 20060415
  Transmission Date: 20061013
  Serious: Yes (Other)
  Sender: FDA-Public Use
  Company Number: 2006051936

PATIENT
  Sex: 0

DRUGS (1)
  1. UNISOM [Suspect]
     Dosage: 32 PILLS ONCE, ORAL
     Route: 048

REACTIONS (4)
  - FEELING ABNORMAL [None]
  - GAIT DISTURBANCE [None]
  - OVERDOSE [None]
  - VOMITING [None]
